FAERS Safety Report 10688810 (Version 1)
Quarter: 2015Q1

REPORT INFORMATION
  Report Type: Spontaneous
  Country: US (occurrence: US)
  Receive Date: 20150103
  Receipt Date: 20150103
  Transmission Date: 20150720
  Serious: No
  Sender: FDA-Public Use
  Company Number: US-ASTRAZENECA-2014SE95963

PATIENT
  Sex: Female

DRUGS (2)
  1. FASLODEX [Suspect]
     Active Substance: FULVESTRANT
     Indication: BREAST CANCER METASTATIC
     Route: 030
     Dates: start: 201404
  2. XGEVA [Concomitant]
     Active Substance: DENOSUMAB
     Indication: METASTASIS

REACTIONS (1)
  - Vaginal odour [Unknown]

NARRATIVE: CASE EVENT DATE: 201406
